FAERS Safety Report 10233691 (Version 1)
Quarter: 2014Q2

REPORT INFORMATION
  Report Type: Spontaneous
  Country: FR (occurrence: FR)
  Receive Date: 20140612
  Receipt Date: 20140612
  Transmission Date: 20141212
  Serious: Yes (Hospitalization)
  Sender: FDA-Public Use
  Company Number: FR-PFIZER INC-2014158849

PATIENT
  Age: 61 Year
  Sex: Male

DRUGS (15)
  1. TRIATEC [Suspect]
     Dosage: 5 MG, DAILY
     Route: 048
     Dates: start: 20131227, end: 20140211
  2. LASILIX [Suspect]
     Dosage: 1 DF, DAILY
     Route: 048
     Dates: start: 20131227, end: 20140211
  3. COLCHIMAX [Concomitant]
     Dosage: UNK
     Dates: start: 20100915
  4. CELLCEPT [Concomitant]
     Dosage: UNK
     Dates: start: 20050502
  5. TENORMIN [Concomitant]
     Dosage: UNK
     Dates: start: 20050502
  6. XATRAL LP [Concomitant]
     Dosage: UNK
     Dates: start: 20050502
  7. HYPERIUM [Concomitant]
     Dosage: UNK
     Dates: start: 20061211
  8. TAHOR [Concomitant]
     Dosage: UNK
     Dates: start: 20080403
  9. SOLUPRED [Concomitant]
     Dosage: UNK
     Dates: start: 20100505
  10. CALCIDOSE [Concomitant]
     Dosage: UNK
     Dates: start: 20111123
  11. UVEDOSE [Concomitant]
     Dosage: UNK
     Dates: start: 20120502
  12. CALDINE [Concomitant]
     Dosage: UNK
     Dates: start: 20120730
  13. VENOFER [Concomitant]
     Dosage: UNK
     Dates: start: 20130415
  14. NEORAL [Concomitant]
     Dosage: UNK
     Dates: start: 20130731
  15. ARANESP [Concomitant]
     Dosage: UNK
     Dates: start: 20140108

REACTIONS (2)
  - Dehydration [Recovered/Resolved]
  - Metabolic acidosis [Recovered/Resolved]
